FAERS Safety Report 11615616 (Version 3)
Quarter: 2016Q1

REPORT INFORMATION
  Report Type: Spontaneous
  Country: JP (occurrence: JP)
  Receive Date: 20151009
  Receipt Date: 20160309
  Transmission Date: 20160525
  Serious: Yes (Hospitalization, Other)
  Sender: FDA-Public Use
  Company Number: JP-BRISTOL-MYERS SQUIBB COMPANY-BMS-2015-067374

PATIENT
  Age: 78 Year
  Sex: Male
  Weight: 43 kg

DRUGS (10)
  1. FEBURIC [Concomitant]
     Active Substance: FEBUXOSTAT
     Indication: BLOOD URIC ACID INCREASED
     Dosage: 10 MG, QD
     Route: 048
     Dates: start: 20140728, end: 20150929
  2. ELIQUIS [Suspect]
     Active Substance: APIXABAN
     Indication: CEREBROVASCULAR ACCIDENT PROPHYLAXIS
     Dosage: 2.5 MG, BID
     Route: 048
     Dates: start: 20141104, end: 20150926
  3. LANIRAPID [Concomitant]
     Active Substance: METILDIGOXIN
     Indication: CARDIAC FAILURE
     Dosage: 0.05 MG, QD
     Route: 048
     Dates: start: 20140715, end: 20150929
  4. XARELTO [Concomitant]
     Active Substance: RIVAROXABAN
     Indication: CARDIAC FAILURE
     Dosage: 10 MG, QD
     Route: 048
     Dates: start: 20140715, end: 20151103
  5. TRAMCET [Concomitant]
     Active Substance: ACETAMINOPHEN\TRAMADOL
     Indication: FINGER AMPUTATION
     Dosage: 1 TAB, QD
     Route: 048
     Dates: start: 20150528, end: 20150929
  6. ALDACTONE [Concomitant]
     Active Substance: SPIRONOLACTONE
     Indication: CARDIAC FAILURE
     Dosage: 25 MG, QD
     Route: 048
     Dates: start: 20140715, end: 20150929
  7. DIART [Concomitant]
     Active Substance: AZOSEMIDE
     Indication: ATRIAL FIBRILLATION
     Dosage: 30 MG, QD
     Route: 048
     Dates: start: 20141104, end: 20150926
  8. MAINTATE [Concomitant]
     Active Substance: BISOPROLOL FUMARATE
     Indication: CARDIAC FAILURE
     Dosage: 1.25 MG, QD
     Route: 048
     Dates: start: 20140715, end: 20150929
  9. BLOPRESS [Concomitant]
     Active Substance: CANDESARTAN CILEXETIL
     Dosage: 2 MG, UNK
     Route: 048
     Dates: start: 20150529, end: 20150929
  10. BLOPRESS [Concomitant]
     Active Substance: CANDESARTAN CILEXETIL
     Indication: CARDIAC FAILURE
     Dosage: 4 MG, QD
     Route: 048
     Dates: start: 20140715, end: 2015

REACTIONS (6)
  - Renal impairment [Unknown]
  - Finger amputation [Unknown]
  - Decreased appetite [Unknown]
  - Dehydration [Unknown]
  - Weight decreased [Unknown]
  - Heat illness [Unknown]

NARRATIVE: CASE EVENT DATE: 201503
